FAERS Safety Report 23940847 (Version 1)
Quarter: 2024Q2

REPORT INFORMATION
  Report Type: Report from Study
  Country: IT (occurrence: IT)
  Receive Date: 20240605
  Receipt Date: 20240605
  Transmission Date: 20240715
  Serious: Yes (Hospitalization)
  Sender: FDA-Public Use
  Company Number: None

PATIENT
  Age: 84 Year
  Sex: Male

DRUGS (6)
  1. APIXABAN [Suspect]
     Active Substance: APIXABAN
     Indication: Product used for unknown indication
     Dosage: DOSAGE: 3.0 MG.
  2. LANOXIN [Concomitant]
     Active Substance: DIGOXIN
     Dosage: LANOXIN 30 TABLETS 0.125MG (ONE AFTER LUNCH),
  3. BISOPROLOL\PERINDOPRIL [Concomitant]
     Active Substance: BISOPROLOL\PERINDOPRIL
     Dosage: COSYREL 30 TABLET 5MG+5MG FL (HALF A TABLET ONE TIME PER DAY),
  4. CORDARONE [Concomitant]
     Active Substance: AMIODARONE HYDROCHLORIDE
     Dosage: CORDARONE 20 TABLETS 200MG (ONE AFTER LUNCH FROM MON TO FRI);
  5. ALFUZOSIN [Concomitant]
     Active Substance: ALFUZOSIN
     Dosage: ALFUZOSIN SAN 30 TABLETS 10MG RP (ONE IN THE EVENING),
  6. LASIX [Concomitant]
     Active Substance: FUROSEMIDE
     Dosage: LASIX 30 TABLETS 25MG - FUROSEMIDE (ONE IN THE MORNING),

REACTIONS (1)
  - Transient ischaemic attack [Recovering/Resolving]

NARRATIVE: CASE EVENT DATE: 20220501
